FAERS Safety Report 8814607 (Version 1)
Quarter: 2012Q4

REPORT INFORMATION
  Report Type: Spontaneous
  Country: US (occurrence: None)
  Receive Date: 20120926
  Receipt Date: 20120926
  Transmission Date: 20130627
  Serious: Yes (Disabling, Other)
  Sender: FDA-Public Use
  Company Number: AXC-2012-000427

PATIENT
  Sex: Male

DRUGS (1)
  1. RECTIV [Suspect]
     Indication: DRUG USE FOR UNKNOWN INDICATION
     Route: 054
     Dates: start: 20120901

REACTIONS (6)
  - Bladder dysfunction [None]
  - Urinary retention [None]
  - Application site anaesthesia [None]
  - Faecal incontinence [None]
  - Hypoaesthesia [None]
  - Pain in extremity [None]
